FAERS Safety Report 11455232 (Version 1)
Quarter: 2015Q3

REPORT INFORMATION
  Report Type: Spontaneous
  Country: US (occurrence: US)
  Receive Date: 20150903
  Receipt Date: 20150903
  Transmission Date: 20151125
  Serious: No
  Sender: FDA-Public Use
  Company Number: US-ELI_LILLY_AND_COMPANY-US201508002927

PATIENT
  Sex: Male

DRUGS (1)
  1. CYMBALTA [Suspect]
     Active Substance: DULOXETINE HYDROCHLORIDE
     Indication: IRRITABILITY
     Dosage: 30 MG, UNKNOWN
     Route: 048
     Dates: start: 201501

REACTIONS (6)
  - Off label use [Unknown]
  - Paraesthesia [Unknown]
  - Nausea [Unknown]
  - Withdrawal syndrome [Unknown]
  - Tinnitus [Unknown]
  - Constipation [Unknown]
